FAERS Safety Report 12155326 (Version 2)
Quarter: 2016Q2

REPORT INFORMATION
  Report Type: Spontaneous
  Country: US (occurrence: US)
  Receive Date: 20160307
  Receipt Date: 20160527
  Transmission Date: 20160815
  Serious: No
  Sender: FDA-Public Use
  Company Number: US-AMGEN-USASP2016022741

PATIENT
  Age: 69 Year

DRUGS (1)
  1. BLINCYTO [Suspect]
     Active Substance: BLINATUMOMAB
     Indication: PRODUCT USED FOR UNKNOWN INDICATION
     Dosage: UNK
     Route: 065
     Dates: start: 20160213

REACTIONS (3)
  - Therapeutic response decreased [Not Recovered/Not Resolved]
  - Blast cells present [Not Recovered/Not Resolved]
  - White blood cell count increased [Not Recovered/Not Resolved]
